FAERS Safety Report 5934153-0 (Version None)
Quarter: 2008Q4

REPORT INFORMATION
  Report Type: 
  Country: None (occurrence: None)
  Receive Date: 20081027
  Receipt Date: 20081014
  Transmission Date: 20090506
  Serious: Yes (Other)
  Sender: FDA-Public Use
  Company Number: 230544K08USA

PATIENT
  Age: 46 Year
  Sex: Female

DRUGS (4)
  1. REBIF [Suspect]
     Indication: MULTIPLE SCLEROSIS
     Dosage: 44 MCG, 3 IN 1 WEEKS, SUBCUTANEOUS
     Route: 058
     Dates: start: 20080111
  2. LEVOXYL [Concomitant]
  3. CLONAZEPAM [Concomitant]
  4. ENABLEX (DARIFENACIN) [Concomitant]

REACTIONS (1)
  - CARDIAC PERFORATION [None]
